FAERS Safety Report 7625292-7 (Version None)
Quarter: 2011Q3

REPORT INFORMATION
  Report Type: 
  Country: None (occurrence: None)
  Receive Date: 20110721
  Receipt Date: 20110718
  Transmission Date: 20111222
  Serious: No
  Sender: FDA-Public Use
  Company Number: US-PFIZER INC-2011162278

PATIENT
  Sex: Female
  Weight: 49.433 kg

DRUGS (5)
  1. MULTI-VITAMINS [Concomitant]
     Dosage: UNK
  2. DIGESTIVES, INCL ENZYMES [Concomitant]
     Dosage: UNK
  3. IRON [Concomitant]
  4. SUTENT [Suspect]
     Dosage: UNK
     Route: 048
  5. VITAMIN B12 TR [Concomitant]
     Dosage: 1000 UG, UNK

REACTIONS (4)
  - RASH MACULAR [None]
  - WEIGHT DECREASED [None]
  - SWELLING FACE [None]
  - STOMATITIS [None]
